FAERS Safety Report 7935704-7 (Version None)
Quarter: 2011Q4

REPORT INFORMATION
  Report Type: 
  Country: None (occurrence: None)
  Receive Date: 20111121
  Receipt Date: 20111110
  Transmission Date: 20120403
  Serious: Yes (Disabling)
  Sender: FDA-Public Use
  Company Number: 2011AP002364

PATIENT
  Age: 67 Year
  Sex: Female

DRUGS (6)
  1. CALCIUM + VITAMIN D (CALCIUM D3 /01483701/) [Concomitant]
  2. EPROSARTAN (EPROSARTAN) [Concomitant]
  3. FLUOXETINE HYDROCHLORIDE [Concomitant]
  4. AMLODIPINE [Concomitant]
  5. BECLOMETHASONE DIPROPIONATE [Concomitant]
  6. ALENDRONATE SODIUM [Suspect]
     Indication: OSTEOPOROSIS
     Dosage: 70 MG
     Route: 048
     Dates: start: 20110117

REACTIONS (1)
  - MICTURITION URGENCY [None]
